FAERS Safety Report 24990347 (Version 2)
Quarter: 2025Q1

REPORT INFORMATION
  Report Type: Spontaneous
  Country: US (occurrence: US)
  Receive Date: 20250220
  Receipt Date: 20250321
  Transmission Date: 20250408
  Serious: No
  Sender: DAIICHI
  Company Number: US-DSJP-DS-2025-126280-US

PATIENT
  Sex: Female

DRUGS (1)
  1. ENHERTU [Suspect]
     Active Substance: FAM-TRASTUZUMAB DERUXTECAN-NXKI
     Indication: Breast cancer
     Dosage: UNK, ONCE EVERY 3 WK
     Route: 065

REACTIONS (3)
  - Interstitial lung disease [Unknown]
  - Fatigue [Unknown]
  - Alopecia [Unknown]
